FAERS Safety Report 4440559-1 (Version None)
Quarter: 2004Q3

REPORT INFORMATION
  Report Type: 
  Country: None (occurrence: None)
  Receive Date: 20040903
  Receipt Date: 20040513
  Transmission Date: 20050211
  Serious: Yes (Death, Life-Threatening)
  Sender: FDA-Public Use
  Company Number: FR-ROCHE-367794

PATIENT
  Age: 53 Year
  Sex: Female
  Weight: 72 kg

DRUGS (6)
  1. PEGASYS [Suspect]
     Dosage: FORM WAS REPORTED AS INJECTABLE SOLUTION.
     Route: 058
     Dates: start: 20040224, end: 20040507
  2. COPEGUS [Suspect]
     Route: 048
     Dates: start: 20040224
  3. COPEGUS [Suspect]
     Dosage: THE DOSE OF COPEGUS WAS REDUCED DUE TO HAEMOLYTIC ANAEMIA.
     Route: 048
     Dates: end: 20040507
  4. BISOPROLOL FUMARATE [Concomitant]
     Indication: HYPERTENSION
  5. DEROXAT [Concomitant]
     Indication: DEPRESSION
     Dosage: DOSAGE REGIMEN WAS REPORTED AS 10 MG.
  6. HYZAAR [Concomitant]
     Route: 048

REACTIONS (16)
  - ADRENAL CORTEX NECROSIS [None]
  - CARDIO-RESPIRATORY ARREST [None]
  - CYTOLYTIC HEPATITIS [None]
  - DISEASE RECURRENCE [None]
  - HAEMOLYTIC ANAEMIA [None]
  - HEPATIC CIRRHOSIS [None]
  - HEPATIC STEATOSIS [None]
  - HYPERTROPHY [None]
  - INFLUENZA [None]
  - PURPURA [None]
  - PYREXIA [None]
  - SEPSIS [None]
  - SEPTIC SHOCK [None]
  - SPLEEN DISORDER [None]
  - SPLENOMEGALY [None]
  - VASCULITIS [None]
